FAERS Safety Report 19282948 (Version 1)
Quarter: 2021Q2

REPORT INFORMATION
  Report Type: Spontaneous
  Country: US (occurrence: US)
  Receive Date: 20210520
  Receipt Date: 20210520
  Transmission Date: 20210717
  Serious: Yes (Death)
  Sender: FDA-Public Use
  Company Number: None

PATIENT
  Age: 78 Year
  Sex: Female

DRUGS (4)
  1. URSODIOL 300MG [Concomitant]
  2. COSENTYX [Suspect]
     Active Substance: SECUKINUMAB
     Indication: PSORIASIS
     Dosage: ?          OTHER FREQUENCY:PER MONTH;?
     Route: 058
     Dates: start: 20191014
  3. CYCLOBENZAPRINE 10MG [Concomitant]
     Active Substance: CYCLOBENZAPRINE
  4. OMEGA?3?ACID 1G [Concomitant]

REACTIONS (5)
  - Pulmonary oedema [None]
  - Fall [None]
  - Chronic kidney disease [None]
  - Lymphadenopathy [None]
  - Sepsis [None]

NARRATIVE: CASE EVENT DATE: 20210520
